FAERS Safety Report 24275586 (Version 2)
Quarter: 2024Q3

REPORT INFORMATION
  Report Type: Spontaneous
  Country: US (occurrence: US)
  Receive Date: 20240903
  Receipt Date: 20240905
  Transmission Date: 20241017
  Serious: Yes (Other)
  Sender: AMGEN
  Company Number: US-AMGEN-USASP2024172988

PATIENT
  Age: 9 Year
  Sex: Female

DRUGS (4)
  1. PROCYSBI [Suspect]
     Active Substance: CYSTEAMINE BITARTRATE
     Indication: Cystinosis
     Dosage: 675 MILLIGRAM, BID (EVERY 12 HOURS)
     Route: 065
  2. PROCYSBI [Suspect]
     Active Substance: CYSTEAMINE BITARTRATE
     Dosage: 675 MILLIGRAM (AT BEDTIME)
     Route: 065
  3. CYSTAGON [Concomitant]
     Active Substance: CYSTEAMINE BITARTRATE
     Dosage: 300 MILLIGRAM (IN THE MORNING)
     Route: 065
  4. CYSTAGON [Concomitant]
     Active Substance: CYSTEAMINE BITARTRATE
     Dosage: 300 MILLIGRAM (AT 2 PM)
     Route: 065

REACTIONS (2)
  - Inflammatory bowel disease [Recovering/Resolving]
  - Amino acid level increased [Not Recovered/Not Resolved]
